FAERS Safety Report 17725062 (Version 1)
Quarter: 2020Q2

REPORT INFORMATION
  Report Type: Spontaneous
  Country: CA (occurrence: CA)
  Receive Date: 20200429
  Receipt Date: 20200429
  Transmission Date: 20200714
  Serious: Yes (Death)
  Sender: FDA-Public Use
  Company Number: CA-PFIZER INC-2020171974

PATIENT
  Age: 77 Year
  Sex: Female
  Weight: 98 kg

DRUGS (2)
  1. DILTIAZEM. [Suspect]
     Active Substance: DILTIAZEM
     Route: 065
  2. VENLAFAXINE HCL [Suspect]
     Active Substance: VENLAFAXINE HYDROCHLORIDE
     Route: 065

REACTIONS (2)
  - Overdose [Fatal]
  - Drug level above therapeutic [Fatal]
